FAERS Safety Report 8004010-7 (Version None)
Quarter: 2011Q4

REPORT INFORMATION
  Report Type: 
  Country: None (occurrence: None)
  Receive Date: 20111222
  Receipt Date: 20111216
  Transmission Date: 20120403
  Serious: Yes (Other)
  Sender: FDA-Public Use
  Company Number: US-CELGENEUS-163-21880-11122329

PATIENT
  Sex: Male

DRUGS (11)
  1. REVLIMID [Suspect]
     Indication: MULTIPLE MYELOMA
     Dosage: 10 MILLIGRAM
     Route: 048
     Dates: start: 20111108
  2. XANAX [Concomitant]
     Route: 065
  3. LEVITRA [Concomitant]
     Route: 065
  4. PHENERGAN [Concomitant]
     Route: 065
  5. FIORICET [Concomitant]
     Route: 065
  6. ZOMETA [Concomitant]
     Route: 065
  7. AMBIEN [Concomitant]
     Route: 065
  8. ASPIRIN [Concomitant]
     Dosage: LOW DOSE
     Route: 065
  9. LORTAB [Concomitant]
     Route: 065
  10. LISINOPRIL [Concomitant]
     Route: 065
  11. OMEPRAZOLE [Concomitant]
     Route: 065

REACTIONS (2)
  - HYPOAESTHESIA [None]
  - SPINAL FRACTURE [None]
